FAERS Safety Report 22065761 (Version 10)
Quarter: 2024Q3

REPORT INFORMATION
  Report Type: Spontaneous
  Country: US (occurrence: US)
  Receive Date: 20230306
  Receipt Date: 20240912
  Transmission Date: 20241016
  Serious: Yes (Other)
  Sender: PFIZER
  Company Number: US-PFIZER INC-PV202300041395

PATIENT
  Age: 92 Year
  Sex: Male

DRUGS (6)
  1. CIBINQO [Interacting]
     Active Substance: ABROCITINIB
     Dosage: 200 MG, DAILY
     Route: 048
  2. CIBINQO [Interacting]
     Active Substance: ABROCITINIB
     Dosage: 100 MG, 1X/DAY
     Route: 048
  3. CIBINQO [Interacting]
     Active Substance: ABROCITINIB
     Dosage: PATIENT TAKES TWO AND A HALF OF 100MG TABLETS IN THE MORNING AND TWO AND HALF TABLETS IN THE EVENING
  4. CIBINQO [Interacting]
     Active Substance: ABROCITINIB
     Dosage: 100 MG
  5. CIBINQO [Interacting]
     Active Substance: ABROCITINIB
     Dosage: 100MG 1/2 TABLET ONCE TO TWICE DAILY AS TOLERATED
     Route: 048
  6. PLAVIX [Interacting]
     Active Substance: CLOPIDOGREL BISULFATE
     Dosage: UNK

REACTIONS (7)
  - Pulmonary oedema [Unknown]
  - Stent placement [Unknown]
  - Off label use [Unknown]
  - Product prescribing error [Unknown]
  - Drug interaction [Unknown]
  - Dizziness [Unknown]
  - Fall [Unknown]

NARRATIVE: CASE EVENT DATE: 20240201
